FAERS Safety Report 8664307 (Version 3)
Quarter: 2013Q1

REPORT INFORMATION
  Report Type: Report from Study
  Country: US (occurrence: US)
  Receive Date: 20120713
  Receipt Date: 20130102
  Transmission Date: 20140127
  Serious: Yes (Hospitalization)
  Sender: FDA-Public Use
  Company Number: US-TEVA-348032USA

PATIENT
  Age: 70 Year
  Sex: Male

DRUGS (7)
  1. METHOTREXATE [Suspect]
     Dosage: STOPPED FOREVER AFTER 5 YEARS OF USE
     Dates: start: 20100908
  2. SAXAGLIPTIN [Suspect]
     Indication: TYPE 2 DIABETES MELLITUS
     Dates: start: 20100908
  3. METFORMIN HYDROCHLORIDE [Suspect]
     Indication: TYPE 2 DIABETES MELLITUS
  4. PIOGLITAZONE HYDROCHLORIDE [Suspect]
     Indication: TYPE 2 DIABETES MELLITUS
     Dates: start: 20120815
  5. PIOGLITAZONE HYDROCHLORIDE [Suspect]
     Dates: start: 20110611, end: 20120221
  6. PIOGLITAZONE HYDROCHLORIDE [Suspect]
     Dates: end: 20110127
  7. GLIBENCLAMIDE [Suspect]
     Indication: TYPE 2 DIABETES MELLITUS

REACTIONS (1)
  - Toxicity to various agents [Recovered/Resolved]
